FAERS Safety Report 25368028 (Version 1)
Quarter: 2025Q2

REPORT INFORMATION
  Report Type: Spontaneous
  Country: US (occurrence: US)
  Receive Date: 20250528
  Receipt Date: 20250528
  Transmission Date: 20250716
  Serious: No
  Sender: PFIZER
  Company Number: US-PFIZER INC-202400036366

PATIENT
  Age: 27 Year
  Sex: Female

DRUGS (3)
  1. CIBINQO [Suspect]
     Active Substance: ABROCITINIB
     Indication: Dermatitis atopic
     Dosage: 100 MG, DAILY
  2. CIBINQO [Suspect]
     Active Substance: ABROCITINIB
     Indication: Lichenification
     Dosage: 50 MG, DAILY
  3. CIBINQO [Suspect]
     Active Substance: ABROCITINIB
     Indication: Rash papular

REACTIONS (2)
  - Alanine aminotransferase increased [Unknown]
  - Dermatitis atopic [Unknown]

NARRATIVE: CASE EVENT DATE: 20250101
